FAERS Safety Report 12240856 (Version 2)
Quarter: 2016Q2

REPORT INFORMATION
  Report Type: Report from Study
  Country: CA (occurrence: CA)
  Receive Date: 20160406
  Receipt Date: 20160506
  Transmission Date: 20160815
  Serious: Yes (Other)
  Sender: FDA-Public Use
  Company Number: CA-BEH-2016060317

PATIENT
  Age: 33 Year
  Sex: Female

DRUGS (3)
  1. BERINERT [Suspect]
     Active Substance: HUMAN C1-ESTERASE INHIBITOR
     Indication: HEREDITARY ANGIOEDEMA
  2. BERINERT [Suspect]
     Active Substance: HUMAN C1-ESTERASE INHIBITOR
  3. BERINERT [Suspect]
     Active Substance: HUMAN C1-ESTERASE INHIBITOR
     Route: 042
     Dates: start: 20151118

REACTIONS (17)
  - Dysphagia [Unknown]
  - Abdominal distension [Not Recovered/Not Resolved]
  - Device issue [Unknown]
  - Unevaluable event [Unknown]
  - Pain [Unknown]
  - Abdominal distension [Unknown]
  - Lip swelling [Unknown]
  - Catheter site extravasation [Unknown]
  - Adverse reaction [Unknown]
  - Abdominal pain [Not Recovered/Not Resolved]
  - Hereditary angioedema [Unknown]
  - Lip swelling [Unknown]
  - Device issue [Recovered/Resolved]
  - Hospitalisation [Unknown]
  - Hereditary angioedema [Not Recovered/Not Resolved]
  - Cough [Unknown]
  - Swelling [Unknown]

NARRATIVE: CASE EVENT DATE: 20160311
